FAERS Safety Report 21967942 (Version 1)
Quarter: 2023Q1

REPORT INFORMATION
  Report Type: Spontaneous
  Country: US (occurrence: None)
  Receive Date: 20230207
  Receipt Date: 20230207
  Transmission Date: 20230417
  Serious: Yes (Other)
  Sender: FDA-Public Use
  Company Number: None

PATIENT
  Age: 76 Year
  Sex: Male
  Weight: 102.06 kg

DRUGS (2)
  1. CREST PRO-HEALTH (CETYLPYRIDINIUM CHLORIDE) [Suspect]
     Active Substance: CETYLPYRIDINIUM CHLORIDE
     Indication: Periodontal disease
     Dates: start: 20230124, end: 20230127
  2. METOPROLOL [Concomitant]
     Active Substance: METOPROLOL

REACTIONS (5)
  - Burn oral cavity [None]
  - Glossodynia [None]
  - Ageusia [None]
  - Chemical burn [None]
  - Physical product label issue [None]

NARRATIVE: CASE EVENT DATE: 20230124
